FAERS Safety Report 12002274 (Version 1)
Quarter: 2016Q1

REPORT INFORMATION
  Report Type: Report from Study
  Country: US (occurrence: US)
  Receive Date: 20160204
  Receipt Date: 20160204
  Transmission Date: 20160526
  Serious: No
  Sender: FDA-Public Use
  Company Number: US-ABBVIE-15K-163-1432917-00

PATIENT
  Age: 55 Year
  Sex: Female

DRUGS (1)
  1. HUMIRA [Suspect]
     Active Substance: ADALIMUMAB
     Indication: RHEUMATOID ARTHRITIS
     Route: 065
     Dates: start: 20150615

REACTIONS (9)
  - Oral pain [Unknown]
  - Gingival pain [Unknown]
  - Tongue ulceration [Unknown]
  - Rash [Unknown]
  - Musculoskeletal pain [Unknown]
  - Sinusitis [Recovering/Resolving]
  - Pain in extremity [Unknown]
  - Toothache [Unknown]
  - Arthralgia [Unknown]

NARRATIVE: CASE EVENT DATE: 2015
